FAERS Safety Report 4311409-9 (Version None)
Quarter: 2004Q1

REPORT INFORMATION
  Report Type: 
  Country: None (occurrence: None)
  Receive Date: 20040303
  Receipt Date: 20040303
  Transmission Date: 20041129
  Serious: Yes (Hospitalization)
  Sender: FDA-Public Use
  Company Number: None

PATIENT
  Age: 23 Year
  Sex: Male
  Weight: 58.2 kg

DRUGS (2)
  1. ZITHROMAX [Suspect]
     Indication: PNEUMONIA
     Dosage: 500 MG PO X1 THEN 250 MG PO QD
     Route: 048
     Dates: start: 20030919
  2. ZITHROMAX [Suspect]
     Indication: PNEUMONIA
     Dosage: 500 MG PO X1 THEN 250 MG PO QD
     Route: 048
     Dates: start: 20030920

REACTIONS (4)
  - DYSPHAGIA [None]
  - HYPERSENSITIVITY [None]
  - LIP ULCERATION [None]
  - MOUTH ULCERATION [None]
